FAERS Safety Report 5236393-5 (Version None)
Quarter: 2007Q1

REPORT INFORMATION
  Report Type: 
  Country: None (occurrence: None)
  Receive Date: 20070208
  Receipt Date: 20070124
  Transmission Date: 20070707
  Serious: Yes (Hospitalization)
  Sender: FDA-Public Use
  Company Number: E2090-00132-SPO-JP

PATIENT
  Age: 5 Year
  Sex: Female

DRUGS (8)
  1. EXCEGRAN (ZONISAMIDE) [Suspect]
     Indication: ENCEPHALOPATHY
     Dosage: 60 MG, 1 IN 1 D, ORAL; 80MG, 1 IN 1 D; ORAL, 100 MG, 1 IN 1 D, ORA;, 200 MG, 1 IN 1 D; ORAL;
     Route: 048
     Dates: start: 20010601, end: 20020620
  2. EXCEGRAN (ZONISAMIDE) [Suspect]
     Indication: ENCEPHALOPATHY
     Dosage: 60 MG, 1 IN 1 D, ORAL; 80MG, 1 IN 1 D; ORAL, 100 MG, 1 IN 1 D, ORA;, 200 MG, 1 IN 1 D; ORAL;
     Route: 048
     Dates: start: 20020621, end: 20021119
  3. EXCEGRAN (ZONISAMIDE) [Suspect]
     Indication: ENCEPHALOPATHY
     Dosage: 60 MG, 1 IN 1 D, ORAL; 80MG, 1 IN 1 D; ORAL, 100 MG, 1 IN 1 D, ORA;, 200 MG, 1 IN 1 D; ORAL;
     Route: 048
     Dates: start: 20021120, end: 20040719
  4. EXCEGRAN (ZONISAMIDE) [Suspect]
     Indication: ENCEPHALOPATHY
     Dosage: 60 MG, 1 IN 1 D, ORAL; 80MG, 1 IN 1 D; ORAL, 100 MG, 1 IN 1 D, ORA;, 200 MG, 1 IN 1 D; ORAL;
     Route: 048
     Dates: start: 20040720
  5. VALPROATE SODIUM [Concomitant]
  6. PHENOBARBITAL TAB [Concomitant]
  7. NITRAZEPAM [Concomitant]
  8. DIAZEPAM [Concomitant]

REACTIONS (2)
  - CALCULUS URETERIC [None]
  - NEPHROLITHIASIS [None]
